FAERS Safety Report 25063895 (Version 1)
Quarter: 2025Q1

REPORT INFORMATION
  Report Type: Spontaneous
  Country: JP (occurrence: JP)
  Receive Date: 20250311
  Receipt Date: 20250311
  Transmission Date: 20250409
  Serious: Yes (Death, Other)
  Sender: BRISTOL-MYERS SQUIBB COMPANY
  Company Number: JP-BRISTOL-MYERS SQUIBB COMPANY-2025-034492

PATIENT
  Age: 58 Year
  Sex: Male
  Weight: 65.1 kg

DRUGS (3)
  1. POMALYST [Suspect]
     Active Substance: POMALIDOMIDE
     Indication: Plasma cell myeloma
     Dates: start: 20240823, end: 20240826
  2. ISATUXIMAB [Suspect]
     Active Substance: ISATUXIMAB
     Indication: Plasma cell myeloma
     Dates: start: 20240823, end: 20240826
  3. CORTICOSTEROID NOS [Concomitant]
     Active Substance: CORTICOSTEROID NOS
     Indication: Plasma cell myeloma
     Dates: start: 20240823, end: 20240826

REACTIONS (7)
  - Pseudomonas infection [Fatal]
  - Alpha haemolytic streptococcal infection [Fatal]
  - Toxicity to various agents [Unknown]
  - Lymphocyte count decreased [Unknown]
  - Haemoglobin decreased [Unknown]
  - Platelet count decreased [Unknown]
  - Bacteraemia [Fatal]

NARRATIVE: CASE EVENT DATE: 20240825
